FAERS Safety Report 8670331 (Version 6)
Quarter: 2013Q3

REPORT INFORMATION
  Report Type: Spontaneous
  Country: US (occurrence: US)
  Receive Date: 20120718
  Receipt Date: 20130717
  Transmission Date: 20140515
  Serious: Yes (Hospitalization, Other)
  Sender: FDA-Public Use
  Company Number: US-PFIZER INC-2012169329

PATIENT
  Age: 47 Year
  Sex: Female
  Weight: 78.01 kg

DRUGS (7)
  1. LYRICA [Suspect]
     Indication: TRIGEMINAL NEURALGIA
     Dosage: 150 MG, 2X/DAY
     Route: 048
  2. LYRICA [Suspect]
     Indication: COMPLEX REGIONAL PAIN SYNDROME
     Dosage: 150 MG, 3X/DAY
     Route: 048
  3. LYRICA [Suspect]
     Dosage: 150 MG, 4X/DAY
     Route: 048
  4. FUROSEMIDE [Concomitant]
     Indication: BLOOD PRESSURE INCREASED
     Dosage: 40 MG, 2X/DAY
  5. CLONIDINE [Concomitant]
     Indication: BLOOD PRESSURE INCREASED
     Dosage: 0.2 MG, 3X/DAY
  6. LISINOPRIL [Concomitant]
     Indication: BLOOD PRESSURE INCREASED
     Dosage: 40 MG, 2X/DAY
  7. METOPROLOL [Concomitant]
     Indication: BLOOD PRESSURE INCREASED
     Dosage: 25 MG DAILY

REACTIONS (8)
  - Facial nerve disorder [Unknown]
  - Nervous system disorder [Unknown]
  - Blood sodium decreased [Unknown]
  - Fall [Unknown]
  - Tooth fracture [Unknown]
  - Limb injury [Unknown]
  - Neuralgia [Unknown]
  - Hypertension [Unknown]
